FAERS Safety Report 8147602-7 (Version None)
Quarter: 2012Q1

REPORT INFORMATION
  Report Type: 
  Country: None (occurrence: None)
  Receive Date: 20120218
  Receipt Date: 20100128
  Transmission Date: 20120608
  Serious: Yes (Hospitalization)
  Sender: FDA-Public Use
  Company Number: NL-AMGEN-NLDSP2010013532

PATIENT
  Age: 49 Year

DRUGS (5)
  1. FOLIC ACID [Concomitant]
     Dosage: UNK
  2. SEROXAT CR [Concomitant]
     Dosage: UNK
  3. ENBREL [Suspect]
     Indication: RHEUMATOID ARTHRITIS
     Dosage: 50 MG, WEEKLY
     Dates: start: 20091111, end: 20100113
  4. METHOTREXATE [Concomitant]
     Dosage: UNK
  5. SIMVASTATIN [Concomitant]
     Dosage: UNK

REACTIONS (3)
  - MALAISE [None]
  - SINUSITIS [None]
  - PYREXIA [None]
